FAERS Safety Report 7568594-5 (Version None)
Quarter: 2011Q2

REPORT INFORMATION
  Report Type: 
  Country: None (occurrence: None)
  Receive Date: 20110617
  Receipt Date: 20110603
  Transmission Date: 20111010
  Serious: Yes (Hospitalization)
  Sender: FDA-Public Use
  Company Number: 2011-00619

PATIENT
  Age: 57 Year
  Sex: Male

DRUGS (11)
  1. AMLODIPINE [Concomitant]
  2. RAMIPRIL [Concomitant]
  3. ISOSORBIDE MONONITRATE [Concomitant]
  4. TRIMETHOPRIM [Concomitant]
  5. RANOLAZINE [Suspect]
     Indication: ANGINA PECTORIS
     Dosage: 1000 MG (500 MG, 2 IN 1 D), ORAL; 750 MG (375 MG, 2 IN 1 D), ORAL
     Route: 048
     Dates: start: 20110407, end: 20110505
  6. RANOLAZINE [Suspect]
     Indication: ANGINA PECTORIS
     Dosage: 1000 MG (500 MG, 2 IN 1 D), ORAL; 750 MG (375 MG, 2 IN 1 D), ORAL
     Route: 048
     Dates: start: 20110506, end: 20110522
  7. ASPIRIN [Concomitant]
  8. CARVEDILOL (UNKNOWN) [Concomitant]
  9. SIMVASTATIN [Suspect]
     Indication: HYPERCHOLESTEROLAEMIA
     Dosage: ORAL
     Route: 048
     Dates: start: 20060724, end: 20110522
  10. GLYCERYL TRINITRATE (UNKNOWN) [Concomitant]
  11. NAFTIDROFURYL OXALATE (UNKNOWN) [Concomitant]

REACTIONS (5)
  - MUSCULOSKELETAL PAIN [None]
  - HYPERCHOLESTEROLAEMIA [None]
  - VOMITING [None]
  - RHABDOMYOLYSIS [None]
  - ARTHRALGIA [None]
